FAERS Safety Report 10077688 (Version 1)
Quarter: 2014Q2

REPORT INFORMATION
  Report Type: Spontaneous
  Country: US (occurrence: US)
  Receive Date: 20140414
  Receipt Date: 20140414
  Transmission Date: 20141212
  Serious: Yes (Other)
  Sender: FDA-Public Use
  Company Number: US-BAXTER-2014BAX017211

PATIENT
  Age: 84 Year
  Sex: Male

DRUGS (3)
  1. FEIBA NF [Suspect]
     Indication: COAGULATION TIME PROLONGED
     Dosage: 43 UNITS/KG
     Route: 065
  2. FEIBA NF [Suspect]
     Indication: OFF LABEL USE
     Dosage: 50 UNITS/KG
     Route: 065
  3. DABIGATRAN [Concomitant]
     Indication: PRODUCT USED FOR UNKNOWN INDICATION
     Route: 065

REACTIONS (1)
  - Drug ineffective [Unknown]
